FAERS Safety Report 11810482 (Version 1)
Quarter: 2015Q4

REPORT INFORMATION
  Report Type: Spontaneous
  Country: GB (occurrence: GB)
  Receive Date: 20151208
  Receipt Date: 20151208
  Transmission Date: 20160305
  Serious: Yes (Other)
  Sender: FDA-Public Use
  Company Number: GB-PFIZER INC-2015325252

PATIENT
  Age: 36 Year
  Sex: Male
  Weight: 88.5 kg

DRUGS (7)
  1. CARDURA XL [Suspect]
     Active Substance: DOXAZOSIN MESYLATE
     Dosage: 12 MG, UNK
     Route: 048
     Dates: start: 201210
  2. RAMIPRIL. [Concomitant]
     Active Substance: RAMIPRIL
  3. CARDURA XL [Suspect]
     Active Substance: DOXAZOSIN MESYLATE
     Dosage: 8 MG, UNK
     Dates: start: 201509
  4. PERINDOPRIL [Concomitant]
     Active Substance: PERINDOPRIL
     Indication: BLOOD PRESSURE INCREASED
     Dosage: 8 MG, DAILY
     Route: 048
     Dates: start: 2009
  5. CARDURA XL [Suspect]
     Active Substance: DOXAZOSIN MESYLATE
     Dosage: 4 MG, UNK
     Dates: start: 200704
  6. CARDURA XL [Suspect]
     Active Substance: DOXAZOSIN MESYLATE
     Indication: BLOOD PRESSURE INCREASED
     Dosage: 1 MG, UNK
     Dates: start: 200304
  7. CARDURA XL [Suspect]
     Active Substance: DOXAZOSIN MESYLATE
     Dosage: 8 MG, UNK
     Dates: start: 201011

REACTIONS (10)
  - Back pain [Unknown]
  - Rectal haemorrhage [Unknown]
  - Headache [Unknown]
  - Gastrointestinal pain [Unknown]
  - Pruritus [Not Recovered/Not Resolved]
  - Malaise [Unknown]
  - Micturition urgency [Unknown]
  - Gastrointestinal tract adenoma [Recovered/Resolved]
  - Overdose [Recovered/Resolved]
  - Fatigue [Unknown]

NARRATIVE: CASE EVENT DATE: 200306
